FAERS Safety Report 11583121 (Version 1)
Quarter: 2015Q4

REPORT INFORMATION
  Report Type: Spontaneous
  Country: US (occurrence: US)
  Receive Date: 20151001
  Receipt Date: 20151001
  Transmission Date: 20160304
  Serious: Yes (Other)
  Sender: FDA-Public Use
  Company Number: US-ROCHE-662387

PATIENT
  Age: 55 Year
  Sex: Female

DRUGS (5)
  1. RIBASPHERE [Suspect]
     Active Substance: RIBAVIRIN
     Indication: HEPATITIS C
     Route: 065
  2. RIBAVIRIN. [Suspect]
     Active Substance: RIBAVIRIN
     Indication: HEPATITIS C
     Dosage: FORMULATION REPORTED AS PILLS
     Route: 048
     Dates: start: 20090927, end: 20091012
  3. PEGASYS [Suspect]
     Active Substance: PEGINTERFERON ALFA-2A
     Indication: HEPATITIS C
     Dosage: FORM: PRE- FILLED SYRINGE
     Route: 058
     Dates: start: 20090927, end: 20091012
  4. PEGASYS [Suspect]
     Active Substance: PEGINTERFERON ALFA-2A
     Dosage: COMPLETED 24 WEEKS OF TREATMENT
     Route: 058
     Dates: start: 20091113, end: 20100423
  5. RIBASPHERE [Suspect]
     Active Substance: RIBAVIRIN
     Dosage: COMPLETED 24 WEEKS OF TREATMENT
     Route: 065

REACTIONS (17)
  - Dyspnoea [Recovering/Resolving]
  - Skin disorder [Recovering/Resolving]
  - Oral disorder [Recovering/Resolving]
  - Dizziness [Recovering/Resolving]
  - Mouth ulceration [Recovering/Resolving]
  - Thirst [Recovering/Resolving]
  - Tachyphrenia [Recovering/Resolving]
  - Hypothyroidism [Unknown]
  - Rash [Recovering/Resolving]
  - Mouth swelling [Recovering/Resolving]
  - Fatigue [Recovering/Resolving]
  - Oral mucosal blistering [Not Recovered/Not Resolved]
  - Tongue disorder [Recovering/Resolving]
  - Skin haemorrhage [Recovering/Resolving]
  - Weight decreased [Recovering/Resolving]
  - Haematochezia [Recovering/Resolving]
  - Blood count abnormal [Recovering/Resolving]

NARRATIVE: CASE EVENT DATE: 20091210
